FAERS Safety Report 6792592-2 (Version None)
Quarter: 2010Q2

REPORT INFORMATION
  Report Type: 
  Country: None (occurrence: None)
  Receive Date: 20100624
  Receipt Date: 20080910
  Transmission Date: 20101027
  Serious: No
  Sender: FDA-Public Use
  Company Number: US-PFIZER INC-2008077228

PATIENT
  Sex: Female

DRUGS (10)
  1. XALATAN [Suspect]
     Indication: GLAUCOMA
  2. ZYRTEC [Suspect]
     Indication: HYPERSENSITIVITY
  3. CELEBREX [Suspect]
     Indication: ARTHRITIS
     Dates: start: 20080101, end: 20080801
  4. DETROL LA [Suspect]
     Indication: BLADDER DISORDER
  5. VESICARE [Suspect]
  6. DRUG, UNSPECIFIED [Suspect]
  7. PRINZIDE [Concomitant]
     Indication: HYPERTENSION
  8. THYROID TAB [Concomitant]
  9. TRAMADOL HCL [Concomitant]
     Indication: PAIN
  10. MELOXICAM [Concomitant]

REACTIONS (9)
  - CONSTIPATION [None]
  - CYSTITIS [None]
  - DRY MOUTH [None]
  - EYE IRRITATION [None]
  - LIP DRY [None]
  - MALAISE [None]
  - OEDEMA PERIPHERAL [None]
  - PAIN IN EXTREMITY [None]
  - WEIGHT DECREASED [None]
